FAERS Safety Report 7909037-9 (Version None)
Quarter: 2011Q4

REPORT INFORMATION
  Report Type: 
  Country: None (occurrence: None)
  Receive Date: 20111111
  Receipt Date: 20111103
  Transmission Date: 20120403
  Serious: Yes (Hospitalization)
  Sender: FDA-Public Use
  Company Number: PHHY2011VE097971

PATIENT
  Sex: Female

DRUGS (3)
  1. CARBAMAZEPINE [Concomitant]
     Dosage: 200 MG, BID
  2. ZOLEDRONOC ACID [Suspect]
     Indication: OSTEOPOROSIS
     Dosage: 5 MG, UNK
     Route: 042
     Dates: start: 20080101
  3. VITAMIN B COMPLEX CAP [Concomitant]
     Dosage: ONCE IN A WHILE

REACTIONS (2)
  - FEMUR FRACTURE [None]
  - FALL [None]
